FAERS Safety Report 4556550-0 (Version None)
Quarter: 2005Q1

REPORT INFORMATION
  Report Type: 
  Country: None (occurrence: None)
  Receive Date: 20050114
  Receipt Date: 20040917
  Transmission Date: 20050727
  Serious: Yes (Life-Threatening)
  Sender: FDA-Public Use
  Company Number: 0002808

PATIENT
  Age: 11 Month
  Sex: Male
  Weight: 6 kg

DRUGS (7)
  1. INTRALIPID 20% [Suspect]
     Indication: CONGENITAL INTESTINAL MALFORMATION
     Dosage: 33 ML/ 1 DAILY/ INTRAVENOUS INF
     Route: 042
     Dates: start: 20040626, end: 20040915
  2. TPN10 [Concomitant]
  3. DEXTROSE [Concomitant]
  4. TROPHAMINE [Concomitant]
  5. CYSTEINE [Concomitant]
  6. ZANTAC [Concomitant]
  7. MULTI-VITAMINS [Concomitant]

REACTIONS (3)
  - BLOOD BILIRUBIN INCREASED [None]
  - BLOOD BILIRUBIN UNCONJUGATED INCREASED [None]
  - LIVER FUNCTION TEST ABNORMAL [None]
